FAERS Safety Report 10442268 (Version 2)
Quarter: 2015Q2

REPORT INFORMATION
  Report Type: Spontaneous
  Country: US (occurrence: None)
  Receive Date: 20140616
  Receipt Date: 20150601
  Transmission Date: 20150821
  Serious: Yes (Hospitalization, Other)
  Sender: FDA-Public Use
  Company Number: 2012-003326

PATIENT
  Age: 76 Year
  Sex: Female

DRUGS (49)
  1. FOSAMAX [Suspect]
     Active Substance: ALENDRONATE SODIUM
     Indication: OSTEOPENIA
     Dosage: ONCE WEEKLY,
     Route: 048
     Dates: start: 200105, end: 200212
  2. PREDNISONE. [Concomitant]
     Active Substance: PREDNISONE
  3. METOLAZONE. [Concomitant]
     Active Substance: METOLAZONE
  4. SPIRONOLACTONE. [Concomitant]
     Active Substance: SPIRONOLACTONE
  5. NAPROXEN. [Concomitant]
     Active Substance: NAPROXEN
  6. ZITHROMAX [Concomitant]
     Active Substance: AZITHROMYCIN DIHYDRATE
  7. LIDOCAINE. [Concomitant]
     Active Substance: LIDOCAINE
  8. ACTONEL [Suspect]
     Active Substance: RISEDRONATE SODIUM
     Indication: OSTEOPOROSIS
     Dosage: ONCE WEEKLY,
     Route: 048
     Dates: start: 200212, end: 2007
  9. ACTONEL [Suspect]
     Active Substance: RISEDRONATE SODIUM
     Indication: OSTEOPENIA
     Dosage: ONCE WEEKLY,
     Route: 048
     Dates: start: 200212, end: 2007
  10. FOSAMAX [Suspect]
     Active Substance: ALENDRONATE SODIUM
     Indication: OSTEOPOROSIS
     Dosage: ONCE WEEKLY,
     Route: 048
     Dates: start: 200105, end: 200212
  11. TOPROL (METOPROLOL SUCCINATE) [Concomitant]
  12. ISOSORBIDE MONONITRATE. [Concomitant]
     Active Substance: ISOSORBIDE MONONITRATE
  13. BENZONATATE. [Concomitant]
     Active Substance: BENZONATATE
  14. CIPRO XR (CIPROFLOXACIN HYDROCHLORIDE) [Concomitant]
  15. MOBIC [Concomitant]
     Active Substance: MELOXICAM
  16. RANITIDINE [Concomitant]
     Active Substance: RANITIDINE\RANITIDINE HYDROCHLORIDE
  17. ACTONEL [Suspect]
     Active Substance: RISEDRONATE SODIUM
     Indication: OSTEOPOROSIS PROPHYLAXIS
     Dosage: ONCE WEEKLY,
     Route: 048
     Dates: start: 200212, end: 2007
  18. COLCHICINE. [Concomitant]
     Active Substance: COLCHICINE
  19. POTASSIUM CHLORIDE. [Concomitant]
     Active Substance: POTASSIUM CHLORIDE
  20. CHOLESTYRAMINE (COLESTYRAMINE) [Concomitant]
  21. CYCLOBENZAPRINE [Concomitant]
     Active Substance: CYCLOBENZAPRINE
  22. ALAVERT (LORATADINE) [Concomitant]
  23. PENICILLIN VK (PHENOXYMETHYLPENICILLIN POTASSIUM) [Concomitant]
  24. FOSAMAX [Suspect]
     Active Substance: ALENDRONATE SODIUM
     Indication: OSTEOPOROSIS PROPHYLAXIS
     Dosage: ONCE WEEKLY,
     Route: 048
     Dates: start: 200105, end: 200212
  25. HYDROXYCHLOROQUINE [Concomitant]
     Active Substance: HYDROXYCHLOROQUINE
  26. NITROTAB (GLYCERYL TRINITRATE) [Concomitant]
  27. PLAVIX [Concomitant]
     Active Substance: CLOPIDOGREL BISULFATE
  28. METOCLOPRAMIDE. [Concomitant]
     Active Substance: METOCLOPRAMIDE
  29. NEXIUM?/01479302/ (ESOMEPRAZOLE MAGNESIUM) [Concomitant]
  30. ENDOCET (OXYCODONE HYDROCHLORIDE, PARACETAMOL) [Concomitant]
  31. NEURONTIN [Concomitant]
     Active Substance: GABAPENTIN
  32. CELEXA?/00582602/ (CITALOPRAM HYDROBROMIDE) [Concomitant]
  33. ALLEGRA (FEXOFENADINE HYDROCHLORIDE) [Concomitant]
  34. AMOXICILLIN. [Concomitant]
     Active Substance: AMOXICILLIN
  35. CLOTRIMAZOLE. [Concomitant]
     Active Substance: CLOTRIMAZOLE
  36. ASPIRIN (ACETYLSALICYLIC ACID) [Concomitant]
     Active Substance: ASPIRIN
  37. ASPIRIN (ACETYLSALICYLIC ACID) [Concomitant]
     Active Substance: ASPIRIN
  38. ZOCOR [Concomitant]
     Active Substance: SIMVASTATIN
  39. FLONASE [Concomitant]
     Active Substance: FLUTICASONE PROPIONATE
  40. METHADONE [Concomitant]
     Active Substance: METHADONE HYDROCHLORIDE
  41. ZETIA [Concomitant]
     Active Substance: EZETIMIBE
  42. CRESTOR [Concomitant]
     Active Substance: ROSUVASTATIN CALCIUM
  43. ACIPHEX [Concomitant]
     Active Substance: RABEPRAZOLE SODIUM
  44. HYDROCODONE W/APAP (HYDROCODONE, PARACETAMOL) [Concomitant]
  45. ALPRAZOLAM. [Concomitant]
     Active Substance: ALPRAZOLAM
  46. HYDROCHLOROTHIAZIDE. [Concomitant]
     Active Substance: HYDROCHLOROTHIAZIDE
  47. NITROQUICK (GLYCERYL TRINITRATE [Concomitant]
  48. FUROSEMIDE. [Concomitant]
     Active Substance: FUROSEMIDE
  49. PRILOSEC [Concomitant]
     Active Substance: OMEPRAZOLE MAGNESIUM

REACTIONS (7)
  - Stress fracture [None]
  - Femur fracture [None]
  - Pain [None]
  - Fall [None]
  - Pathological fracture [None]
  - Bone disorder [None]
  - Low turnover osteopathy [None]

NARRATIVE: CASE EVENT DATE: 20071224
